FAERS Safety Report 9681338 (Version 1)
Quarter: 2013Q4

REPORT INFORMATION
  Report Type: Spontaneous
  Country: US (occurrence: None)
  Receive Date: 20131108
  Receipt Date: 20131108
  Transmission Date: 20140711
  Serious: Yes (Other)
  Sender: FDA-Public Use
  Company Number: None

PATIENT
  Age: 44 Year
  Sex: Female
  Weight: 134.27 kg

DRUGS (5)
  1. PROTONOX GENERIC PROTONOX [Suspect]
     Indication: GASTROOESOPHAGEAL REFLUX DISEASE
     Dosage: PROTONIX 40MG-TAKE 2 TABLETS ONCE DAILY TAKEN BY MOUTH
     Route: 048
     Dates: start: 20131106, end: 20131107
  2. PROTONOX GENERIC PROTONOX [Suspect]
     Indication: ASTHMA
     Dosage: PROTONIX 40MG-TAKE 2 TABLETS ONCE DAILY TAKEN BY MOUTH
     Route: 048
     Dates: start: 20131106, end: 20131107
  3. PROTONOX GENERIC PROTONOX [Suspect]
     Indication: ERUCTATION
     Dosage: PROTONIX 40MG-TAKE 2 TABLETS ONCE DAILY TAKEN BY MOUTH
     Route: 048
     Dates: start: 20131106, end: 20131107
  4. PROTONOX GENERIC PROTONOX [Suspect]
     Indication: ERUCTATION
     Dosage: PROTONIX 40MG-TAKE 2 TABLETS ONCE DAILY TAKEN BY MOUTH
     Route: 048
     Dates: start: 20131106, end: 20131107
  5. PROTONOX GENERIC PROTONOX [Suspect]
     Indication: DYSPNOEA
     Dosage: PROTONIX 40MG-TAKE 2 TABLETS ONCE DAILY TAKEN BY MOUTH
     Route: 048
     Dates: start: 20131106, end: 20131107

REACTIONS (6)
  - Pain in extremity [None]
  - Muscular weakness [None]
  - Heart rate increased [None]
  - Feeling jittery [None]
  - Nausea [None]
  - Vomiting [None]
